FAERS Safety Report 18797252 (Version 1)
Quarter: 2021Q1

REPORT INFORMATION
  Report Type: Report from Study
  Country: None (occurrence: US)
  Receive Date: 20210128
  Receipt Date: 20210128
  Transmission Date: 20210419
  Serious: Yes (Hospitalization, Other)
  Sender: FDA-Public Use
  Company Number: US-ABBVIE-21K-163-3746792-00

PATIENT
  Sex: Female

DRUGS (1)
  1. HUMIRA [Suspect]
     Active Substance: ADALIMUMAB
     Indication: CROHN^S DISEASE
     Route: 058

REACTIONS (6)
  - Gastrointestinal inflammation [Unknown]
  - Gastrointestinal obstruction [Unknown]
  - Vomiting [Unknown]
  - Crohn^s disease [Unknown]
  - Nausea [Unknown]
  - Pain [Unknown]
